FAERS Safety Report 21083717 (Version 1)
Quarter: 2022Q3

REPORT INFORMATION
  Report Type: Spontaneous
  Country: US (occurrence: US)
  Receive Date: 20220714
  Receipt Date: 20220714
  Transmission Date: 20221027
  Serious: No
  Sender: FDA-Public Use
  Company Number: US-JAZZ-2022-US-012224

PATIENT
  Age: 34 Year
  Sex: Female

DRUGS (5)
  1. EPIDIOLEX [Suspect]
     Active Substance: CANNABIDIOL
     Indication: Lennox-Gastaut syndrome
     Dosage: 3.7 MILLILITER
     Route: 048
     Dates: start: 20220411
  2. VIMPAT [Concomitant]
     Active Substance: LACOSAMIDE
  3. LAMOTRIGINE [Concomitant]
     Active Substance: LAMOTRIGINE
  4. CLOBAZAM [Concomitant]
     Active Substance: CLOBAZAM
  5. CLONAZEPAM [Concomitant]
     Active Substance: CLONAZEPAM

REACTIONS (1)
  - Dizziness [Recovered/Resolved]

NARRATIVE: CASE EVENT DATE: 20220324
